FAERS Safety Report 21093554 (Version 2)
Quarter: 2022Q3

REPORT INFORMATION
  Report Type: Report from Study
  Country: CN (occurrence: CN)
  Receive Date: 20220718
  Receipt Date: 20220802
  Transmission Date: 20221027
  Serious: Yes (Hospitalization)
  Sender: FDA-Public Use
  Company Number: CN-NOVARTISPH-NVSC2022CN161219

PATIENT
  Age: 35 Year
  Sex: Female
  Weight: 65.2 kg

DRUGS (12)
  1. TYKERB [Suspect]
     Active Substance: LAPATINIB DITOSYLATE
     Indication: Breast cancer
     Dosage: 1250 MG, QD (5 TABLETS)
     Route: 048
     Dates: start: 20220407, end: 20220426
  2. TYKERB [Suspect]
     Active Substance: LAPATINIB DITOSYLATE
     Dosage: 1250 MG, QD (5 TABLETS)
     Route: 048
     Dates: start: 20220506, end: 20220525
  3. TYKERB [Suspect]
     Active Substance: LAPATINIB DITOSYLATE
     Dosage: 1250 MG, QD (5 TABLETS)
     Route: 048
     Dates: start: 20220527, end: 20220615
  4. TYKERB [Suspect]
     Active Substance: LAPATINIB DITOSYLATE
     Dosage: 1250 MG, QD (5 TABLETS)
     Route: 048
     Dates: start: 20220620, end: 20220629
  5. CAPECITABINE [Suspect]
     Active Substance: CAPECITABINE
     Indication: Breast cancer
     Dosage: 1.5 G (3 TABLETS) IN THE MORNING AND 2.0 G (4 TABLETS) IN THE EVENING
     Route: 048
     Dates: start: 20220407, end: 20220420
  6. CAPECITABINE [Suspect]
     Active Substance: CAPECITABINE
     Dosage: 1.5 G (3 TABLETS) IN THE MORNING AND 2.0 G (4 TABLETS) IN THE EVENING
     Route: 048
     Dates: start: 20220506, end: 20220519
  7. CAPECITABINE [Suspect]
     Active Substance: CAPECITABINE
     Dosage: 1.5 G (3 TABLETS) IN THE MORNING AND 1.5 G (3 TABLETS) IN THE EVENING
     Route: 048
     Dates: start: 20220527, end: 20220613
  8. CAPECITABINE [Suspect]
     Active Substance: CAPECITABINE
     Dosage: 1.5 G (3 TABLETS) IN THE MORNING AND 2.0 G (4 TABLETS) IN THE EVENING
     Route: 048
     Dates: start: 20220620, end: 20220629
  9. CAPECITABINE [Suspect]
     Active Substance: CAPECITABINE
     Dosage: UNK
     Route: 065
  10. ADEMETIONINE BUTANEDISULFONATE [Concomitant]
     Active Substance: ADEMETIONINE BUTANEDISULFONATE
     Indication: Product used for unknown indication
     Dosage: 1 G, QD (LYOPHILIZED)
     Route: 065
     Dates: start: 20220630, end: 20220704
  11. GLUTATHIONE [Concomitant]
     Active Substance: GLUTATHIONE
     Indication: Product used for unknown indication
     Dosage: 1.8 G, QD
     Route: 065
     Dates: start: 20220630, end: 20220704
  12. MAGNESIUM ISOGLYCYRRHIZINATE [Concomitant]
     Active Substance: MAGNESIUM ISOGLYCYRRHIZINATE
     Indication: Product used for unknown indication
     Dosage: 150 MG, QD
     Route: 065
     Dates: start: 20220630, end: 20220704

REACTIONS (3)
  - Alanine aminotransferase increased [Recovered/Resolved]
  - Abdominal distension [Unknown]
  - Abdominal pain [Unknown]

NARRATIVE: CASE EVENT DATE: 20220624
